FAERS Safety Report 13625808 (Version 2)
Quarter: 2017Q2

REPORT INFORMATION
  Report Type: Spontaneous
  Country: US (occurrence: US)
  Receive Date: 20170608
  Receipt Date: 20170620
  Transmission Date: 20170830
  Serious: No
  Sender: FDA-Public Use
  Company Number: US-BAYER-2017-108610

PATIENT
  Age: 75 Year
  Sex: Female
  Weight: 84 kg

DRUGS (4)
  1. MIRALAX [Suspect]
     Active Substance: POLYETHYLENE GLYCOL 3350
     Indication: GASTROINTESTINAL DISORDER
     Dosage: 1 DF, QD
     Route: 048
  2. SIMVASTATIN. [Concomitant]
     Active Substance: SIMVASTATIN
  3. ATENOLOL. [Concomitant]
     Active Substance: ATENOLOL
  4. MIRALAX [Suspect]
     Active Substance: POLYETHYLENE GLYCOL 3350
     Indication: PREOPERATIVE CARE
     Dosage: UNK
     Route: 048
     Dates: start: 20170606

REACTIONS (5)
  - Product use in unapproved indication [Unknown]
  - Diarrhoea [Unknown]
  - Off label use [Unknown]
  - Intentional product misuse [Unknown]
  - Product use issue [Unknown]
